FAERS Safety Report 8483342-2 (Version None)
Quarter: 2012Q3

REPORT INFORMATION
  Report Type: 
  Country: None (occurrence: None)
  Receive Date: 20120702
  Receipt Date: 20120627
  Transmission Date: 20120928
  Serious: Yes (Other)
  Sender: FDA-Public Use
  Company Number: AU-AMGEN-AUSCT2012039878

PATIENT
  Age: 36 Year

DRUGS (1)
  1. DENOSUMAB [Suspect]
     Indication: BONE GIANT CELL TUMOUR
     Dosage: 120 MG, Q4WK
     Route: 058
     Dates: start: 20090729, end: 20100425

REACTIONS (1)
  - LUNG ADENOCARCINOMA [None]
